FAERS Safety Report 9154511 (Version 1)
Quarter: 2013Q1

REPORT INFORMATION
  Report Type: Spontaneous
  Country: US (occurrence: US)
  Receive Date: 20130311
  Receipt Date: 20130311
  Transmission Date: 20140127
  Serious: No
  Sender: FDA-Public Use
  Company Number: US-ABBOTT-12P-163-0956028-00

PATIENT
  Sex: Female

DRUGS (1)
  1. LUPRON DEPOT 11.25 MG [Suspect]
     Indication: ENDOMETRIOSIS
     Dosage: ONCE
     Route: 030
     Dates: start: 20111221, end: 20111221

REACTIONS (10)
  - Hyperhidrosis [Unknown]
  - Asthenia [Unknown]
  - Nausea [Unknown]
  - Pelvic pain [Unknown]
  - Arthralgia [Unknown]
  - Headache [Unknown]
  - Depression [Unknown]
  - Hyperhidrosis [Unknown]
  - Fatigue [Unknown]
  - Memory impairment [Unknown]
